FAERS Safety Report 19471551 (Version 1)
Quarter: 2021Q2

REPORT INFORMATION
  Report Type: Spontaneous
  Country: US (occurrence: US)
  Receive Date: 20210628
  Receipt Date: 20210628
  Transmission Date: 20210717
  Serious: Yes (Hospitalization)
  Sender: FDA-Public Use
  Company Number: None

PATIENT
  Age: 76 Year
  Sex: Female

DRUGS (3)
  1. PREDNISONE. [Concomitant]
     Active Substance: PREDNISONE
  2. SMZ/TMP DS [Concomitant]
     Active Substance: SULFAMETHOXAZOLE\TRIMETHOPRIM
  3. ORENCIA [Suspect]
     Active Substance: ABATACEPT
     Indication: RHEUMATOID ARTHRITIS
     Route: 058
     Dates: start: 20210318

REACTIONS (11)
  - BRCA1 gene mutation [None]
  - Pain [None]
  - Urinary control neurostimulator implantation [None]
  - Blood glucose increased [None]
  - Rheumatoid arthritis [None]
  - Urinary retention [None]
  - Breast cancer [None]
  - Cerebrovascular accident [None]
  - Device failure [None]
  - Mastectomy [None]
  - Therapy interrupted [None]

NARRATIVE: CASE EVENT DATE: 20210506
